FAERS Safety Report 17632752 (Version 1)
Quarter: 2020Q2

REPORT INFORMATION
  Report Type: Spontaneous
  Country: GB (occurrence: GB)
  Receive Date: 20200406
  Receipt Date: 20200406
  Transmission Date: 20200713
  Serious: Yes (Hospitalization)
  Sender: FDA-Public Use
  Company Number: GB-TEVA-2020-GB-1218688

PATIENT
  Age: 23 Year
  Sex: Male

DRUGS (4)
  1. TOPIRAMATE. [Suspect]
     Active Substance: TOPIRAMATE
     Dosage: 150 MG 1 DAYS
     Route: 048
     Dates: end: 20200227
  2. EPILIM [Suspect]
     Active Substance: VALPROATE SODIUM
     Dosage: REDUCED TO 800MG TWICE DAILY , 2 GRAM 1 DAYS
     Route: 048
  3. CLENIL MODULITE [Concomitant]
     Active Substance: BECLOMETHASONE DIPROPIONATE
     Dosage: 400 MICROGRAM 1 DAYS
     Route: 055
  4. SALBUTAMOL [Concomitant]
     Active Substance: ALBUTEROL
     Dosage: 100MICROGRAMS/DOSE?1-2 PUFFS WHEN REQUIRED
     Route: 055

REACTIONS (3)
  - Seizure [Unknown]
  - Ammonia increased [Unknown]
  - Hyperammonaemic encephalopathy [Recovered/Resolved]

NARRATIVE: CASE EVENT DATE: 20200227
